FAERS Safety Report 18356223 (Version 1)
Quarter: 2020Q4

REPORT INFORMATION
  Report Type: Spontaneous
  Country: FR (occurrence: FR)
  Receive Date: 20201007
  Receipt Date: 20201007
  Transmission Date: 20210114
  Serious: No
  Sender: FDA-Public Use
  Company Number: FR-JNJFOC-20200921643

PATIENT

DRUGS (16)
  1. RISPERDAL CONSTA [Suspect]
     Active Substance: RISPERIDONE
  2. RISPERDAL CONSTA [Suspect]
     Active Substance: RISPERIDONE
     Indication: PRODUCT USED FOR UNKNOWN INDICATION
     Route: 030
  3. RISPERDAL CONSTA [Suspect]
     Active Substance: RISPERIDONE
  4. RISPERDAL CONSTA [Suspect]
     Active Substance: RISPERIDONE
  5. RISPERDAL CONSTA [Suspect]
     Active Substance: RISPERIDONE
  6. RISPERDAL CONSTA [Suspect]
     Active Substance: RISPERIDONE
  7. RISPERDAL CONSTA [Suspect]
     Active Substance: RISPERIDONE
     Route: 030
  8. RISPERDAL CONSTA [Suspect]
     Active Substance: RISPERIDONE
  9. RISPERDAL CONSTA [Suspect]
     Active Substance: RISPERIDONE
  10. RISPERDAL CONSTA [Suspect]
     Active Substance: RISPERIDONE
  11. RISPERDAL CONSTA [Suspect]
     Active Substance: RISPERIDONE
  12. RISPERDAL CONSTA [Suspect]
     Active Substance: RISPERIDONE
  13. RISPERDAL CONSTA [Suspect]
     Active Substance: RISPERIDONE
     Indication: PRODUCT USED FOR UNKNOWN INDICATION
     Route: 030
  14. RISPERDAL CONSTA [Suspect]
     Active Substance: RISPERIDONE
  15. RISPERDAL CONSTA [Suspect]
     Active Substance: RISPERIDONE
  16. RISPERDAL CONSTA [Suspect]
     Active Substance: RISPERIDONE

REACTIONS (2)
  - Underdose [Unknown]
  - Needle issue [Unknown]
